FAERS Safety Report 5788888-3 (Version None)
Quarter: 2008Q2

REPORT INFORMATION
  Report Type: 
  Country: None (occurrence: None)
  Receive Date: 20080626
  Receipt Date: 20071126
  Transmission Date: 20081010
  Serious: No
  Sender: FDA-Public Use
  Company Number: US-ASTRAZENECA-2007UW27090

PATIENT
  Age: 54 Year
  Sex: Female
  Weight: 89.4 kg

DRUGS (7)
  1. PULMICORT FLEXHALER [Suspect]
     Indication: DYSPNOEA
     Route: 055
  2. SYNTHROID [Concomitant]
  3. NAPROSYN [Concomitant]
  4. NASONEX [Concomitant]
  5. VITAMINS [Concomitant]
  6. CALCIUM [Concomitant]
  7. ADVAIR DISKUS 100/50 [Concomitant]

REACTIONS (1)
  - DYSPNOEA [None]
